FAERS Safety Report 8073296-5 (Version None)
Quarter: 2012Q1

REPORT INFORMATION
  Report Type: 
  Country: None (occurrence: None)
  Receive Date: 20120123
  Receipt Date: 20120123
  Transmission Date: 20120608
  Serious: Yes (Hospitalization)
  Sender: FDA-Public Use
  Company Number: None

PATIENT
  Sex: Female
  Weight: 60 kg

DRUGS (4)
  1. TAXOL [Suspect]
     Dosage: 1560 MG
     Dates: end: 20111227
  2. DOXORUBICIN HCL [Suspect]
     Dosage: 95 MG.
     Dates: end: 20120104
  3. NEULASTA [Suspect]
     Dosage: 6 MG
     Dates: end: 20120105
  4. CYCLOPHOSPHAMIDE [Suspect]
     Dosage: 950 MG
     Dates: end: 20120104

REACTIONS (9)
  - ASTHENIA [None]
  - PYREXIA [None]
  - DIARRHOEA [None]
  - DYSPHAGIA [None]
  - ORAL CANDIDIASIS [None]
  - DEHYDRATION [None]
  - PNEUMONIA [None]
  - NAUSEA [None]
  - PRESYNCOPE [None]
